FAERS Safety Report 23501364 (Version 2)
Quarter: 2024Q2

REPORT INFORMATION
  Report Type: Spontaneous
  Country: ES (occurrence: ES)
  Receive Date: 20240208
  Receipt Date: 20240605
  Transmission Date: 20240716
  Serious: Yes (Hospitalization)
  Sender: FDA-Public Use
  Company Number: ES-ROCHE-3499807

PATIENT
  Age: 72 Year
  Sex: Female
  Weight: 53.7 kg

DRUGS (5)
  1. CARBOPLATIN [Suspect]
     Active Substance: CARBOPLATIN
     Indication: Small cell lung cancer
     Dates: start: 20220520
  2. CARBOPLATIN [Suspect]
     Active Substance: CARBOPLATIN
     Dosage: AUC5
     Dates: end: 20220727
  3. ATEZOLIZUMAB [Suspect]
     Active Substance: ATEZOLIZUMAB
     Indication: Small cell lung cancer
     Dates: start: 20220520, end: 20221129
  4. ATEZOLIZUMAB [Suspect]
     Active Substance: ATEZOLIZUMAB
     Dosage: 1200 MG?UNKNOWN
     Dates: end: 20221130
  5. ETOPOSIDE [Suspect]
     Active Substance: ETOPOSIDE
     Indication: Small cell lung cancer
     Dosage: 80 MG/M2?UNKNOWN
     Dates: start: 20220520

REACTIONS (3)
  - Encephalopathy [Recovered/Resolved]
  - Encephalitis autoimmune [Unknown]
  - Disease progression [Unknown]

NARRATIVE: CASE EVENT DATE: 20230121
